FAERS Safety Report 4817181-8 (Version None)
Quarter: 2005Q4

REPORT INFORMATION
  Report Type: 
  Country: None (occurrence: None)
  Receive Date: 20051018
  Receipt Date: 20050128
  Transmission Date: 20060501
  Serious: Yes (Other)
  Sender: FDA-Public Use
  Company Number: PHEH2004US12342

PATIENT
  Age: 63 Year
  Sex: Female

DRUGS (1)
  1. ZOMETA [Suspect]
     Indication: BREAST CANCER METASTATIC
     Dosage: 4MG QMO, INTRAVENOUS
     Route: 042
     Dates: start: 20031201, end: 20041101

REACTIONS (15)
  - ADVERSE DRUG REACTION [None]
  - BLOOD CALCIUM INCREASED [None]
  - COSTOCHONDRITIS [None]
  - COUGH [None]
  - DISEASE PROGRESSION [None]
  - DYSPNOEA [None]
  - FEELING ABNORMAL [None]
  - FURUNCLE [None]
  - HYPOAESTHESIA [None]
  - JAW DISORDER [None]
  - MUSCLE SPASMS [None]
  - NEURALGIA [None]
  - NON-CARDIAC CHEST PAIN [None]
  - PAIN IN JAW [None]
  - WHEEZING [None]
